FAERS Safety Report 6781594-8 (Version None)
Quarter: 2010Q2

REPORT INFORMATION
  Report Type: 
  Country: None (occurrence: None)
  Receive Date: 20100621
  Receipt Date: 20100609
  Transmission Date: 20101027
  Serious: Yes (Other)
  Sender: FDA-Public Use
  Company Number: FR-ABBOTT-10P-056-0650743-00

PATIENT
  Age: 66 Year
  Sex: Male

DRUGS (5)
  1. ODRIK [Suspect]
     Indication: DRUG USE FOR UNKNOWN INDICATION
     Dates: end: 20100421
  2. ZANEXTRA [Suspect]
     Indication: HYPERTENSION
     Dates: start: 20100421, end: 20100422
  3. ZANIDIP [Suspect]
     Indication: DRUG USE FOR UNKNOWN INDICATION
     Dates: end: 20100421
  4. SOTALOL [Concomitant]
     Indication: ATRIAL FIBRILLATION
     Dates: start: 20100422
  5. FLUINDIONE [Concomitant]
     Indication: DRUG USE FOR UNKNOWN INDICATION

REACTIONS (3)
  - CARDIAC ARREST [None]
  - HYPERKALAEMIA [None]
  - RENAL FAILURE ACUTE [None]
